FAERS Safety Report 8419221-6 (Version None)
Quarter: 2012Q2

REPORT INFORMATION
  Report Type: 
  Country: None (occurrence: None)
  Receive Date: 20120607
  Receipt Date: 20120529
  Transmission Date: 20120825
  Serious: Yes (Hospitalization, Other)
  Sender: FDA-Public Use
  Company Number: US-JNJFOC-20120515948

PATIENT
  Age: 10 Year
  Sex: Female

DRUGS (6)
  1. IBUPROFEN [Suspect]
     Indication: MALAISE
     Route: 065
  2. IBUPROFEN [Suspect]
     Indication: PYREXIA
     Route: 065
  3. DEXTROMETHORPHAN HYDROBROMIDE [Suspect]
     Indication: MALAISE
     Route: 065
  4. DEXTROMETHORPHAN HYDROBROMIDE [Suspect]
     Indication: COUGH
     Route: 065
  5. DEXTROMETHORPHAN HYDROBROMIDE [Suspect]
     Indication: PYREXIA
     Route: 065
  6. IBUPROFEN [Suspect]
     Indication: COUGH
     Route: 065

REACTIONS (2)
  - WRONG DRUG ADMINISTERED [None]
  - STEVENS-JOHNSON SYNDROME [None]
